FAERS Safety Report 10103775 (Version 2)
Quarter: 2014Q4

REPORT INFORMATION
  Report Type: Spontaneous
  Country: DK (occurrence: CA)
  Receive Date: 20140424
  Receipt Date: 20141113
  Transmission Date: 20150528
  Serious: Yes (Disabling)
  Sender: FDA-Public Use
  Company Number: CA-FRI-1000066808

PATIENT
  Age: 57 Year
  Sex: Male
  Weight: 61.23 kg

DRUGS (5)
  1. ALCOHOL. [Suspect]
     Active Substance: ALCOHOL
     Indication: PRODUCT USED FOR UNKNOWN INDICATION
     Dosage: TOOK 5-6 BEERS OF 33 CENTILITERS EACH
     Route: 048
     Dates: start: 20140215, end: 20140215
  2. ESCITALOPRAM [Suspect]
     Active Substance: ESCITALOPRAM OXALATE
     Indication: DEPRESSION
     Route: 048
     Dates: start: 201212
  3. ESCITALOPRAM [Suspect]
     Active Substance: ESCITALOPRAM OXALATE
     Indication: ANXIETY
  4. VIMOVO [Concomitant]
     Active Substance: ESOMEPRAZOLE MAGNESIUM\NAPROXEN
     Dosage: 200MG /50 MG
     Dates: start: 201312
  5. APO-OXAZEPAM [Concomitant]
     Dosage: DOSE NOT REPORTED.

REACTIONS (6)
  - Impaired driving ability [Unknown]
  - Haemochromatosis [Unknown]
  - Blood alcohol increased [Unknown]
  - Fatigue [Unknown]
  - Drug interaction [Unknown]
  - Feeling drunk [Unknown]

NARRATIVE: CASE EVENT DATE: 201401
